FAERS Safety Report 4769016-X (Version None)
Quarter: 2005Q3

REPORT INFORMATION
  Report Type: 
  Country: None (occurrence: None)
  Receive Date: 20050906
  Receipt Date: 20050509
  Transmission Date: 20060218
  Serious: No
  Sender: FDA-Public Use
  Company Number: 2005-BP-06991BP

PATIENT
  Age: 63 Year
  Sex: Male

DRUGS (8)
  1. SPIRIVA [Suspect]
     Indication: CHRONIC OBSTRUCTIVE PULMONARY DISEASE
     Dosage: 18 MCG (18 MCG,QD),IH
     Dates: start: 20040601
  2. SPIRIVA [Suspect]
     Indication: EMPHYSEMA
  3. PROVENTIL (SALBUTAMOL SULFATE) [Concomitant]
  4. IMDUR (SIOSORBIDE MONONITRATE) [Concomitant]
  5. NORVASC [Concomitant]
  6. DIOVAN HCT (CO-DIOVAN) [Concomitant]
  7. COMBIVENT (COMBIVENT/GFR/) [Concomitant]
  8. ADVAIR DISKUS 100/50 [Concomitant]

REACTIONS (1)
  - FORCED EXPIRATORY VOLUME DECREASED [None]
